FAERS Safety Report 7498350-8 (Version None)
Quarter: 2011Q2

REPORT INFORMATION
  Report Type: 
  Country: None (occurrence: None)
  Receive Date: 20110524
  Receipt Date: 20110519
  Transmission Date: 20111010
  Serious: Yes (Other)
  Sender: FDA-Public Use
  Company Number: US-BAYER-2011-043282

PATIENT
  Sex: Male

DRUGS (1)
  1. TRASYLOL [Suspect]
     Route: 042

REACTIONS (4)
  - BLINDNESS UNILATERAL [None]
  - VISUAL ACUITY REDUCED [None]
  - UNEVALUABLE EVENT [None]
  - RENAL IMPAIRMENT [None]
